FAERS Safety Report 24158521 (Version 1)
Quarter: 2024Q3

REPORT INFORMATION
  Report Type: Report from Study
  Country: US (occurrence: US)
  Receive Date: 20240731
  Receipt Date: 20240731
  Transmission Date: 20241016
  Serious: Yes (Death)
  Sender: SANDOZ
  Company Number: US-SANDOZ-SDZ2024US069504

PATIENT
  Sex: Male

DRUGS (1)
  1. ZARXIO [Suspect]
     Active Substance: FILGRASTIM-SNDZ
     Indication: Hodgkin^s disease
     Dosage: 300 UG, QD
     Route: 058
     Dates: start: 20240424, end: 20240508

REACTIONS (1)
  - Malaise [Fatal]
